FAERS Safety Report 8713406 (Version 4)
Quarter: 2014Q2

REPORT INFORMATION
  Report Type: Spontaneous
  Country: US (occurrence: US)
  Receive Date: 20120808
  Receipt Date: 20140515
  Transmission Date: 20141212
  Serious: Yes (Other)
  Sender: FDA-Public Use
  Company Number: US-GLAXOSMITHKLINE-A0988651A

PATIENT
  Age: 70 Year
  Sex: Female

DRUGS (8)
  1. ADVAIR [Suspect]
     Indication: ASTHMA
     Dosage: 1PUFF TWICE PER DAY
     Route: 055
     Dates: start: 20090730
  2. VENTOLIN HFA [Suspect]
     Indication: ASTHMA
     Dosage: 2PUFF AS REQUIRED
     Route: 055
     Dates: start: 201108
  3. IPRATROPIUM BROMIDE [Concomitant]
  4. DIOVAN [Concomitant]
  5. HYDROCHLOROTHIAZIDE [Concomitant]
  6. CLONAZEPAM [Concomitant]
  7. SINGULAIR [Concomitant]
  8. ALBUTEROL NEBULIZER [Concomitant]

REACTIONS (8)
  - Pneumonia [Unknown]
  - Dyspnoea [Unknown]
  - Bronchitis [Unknown]
  - Drug administration error [Not Recovered/Not Resolved]
  - Cough [Unknown]
  - Asthma [Unknown]
  - Increased upper airway secretion [Not Recovered/Not Resolved]
  - Off label use [Unknown]
